FAERS Safety Report 7418797-5 (Version None)
Quarter: 2011Q1

REPORT INFORMATION
  Report Type: 
  Country: None (occurrence: None)
  Receive Date: 20110302
  Receipt Date: 20101202
  Transmission Date: 20110831
  Serious: No
  Sender: FDA-Public Use
  Company Number: 020318

PATIENT
  Sex: Female
  Weight: 77.6 kg

DRUGS (3)
  1. CIMZIA [Suspect]
     Indication: CROHN'S DISEASE
     Dosage: 400 MG 1X/28 DAYS SUBCUTANEOUS, 400 MG 1X/28 DAYS SUBCUTANEOUS
     Route: 058
     Dates: start: 20090502
  2. CIMZIA [Suspect]
     Indication: CROHN'S DISEASE
     Dosage: 400 MG 1X/28 DAYS SUBCUTANEOUS, 400 MG 1X/28 DAYS SUBCUTANEOUS
     Route: 058
     Dates: start: 20090520
  3. CIMZIA [Suspect]

REACTIONS (9)
  - PYREXIA [None]
  - DECREASED APPETITE [None]
  - DIARRHOEA [None]
  - CROHN'S DISEASE [None]
  - HEADACHE [None]
  - DRUG INEFFECTIVE [None]
  - FLATULENCE [None]
  - NAUSEA [None]
  - PAIN [None]
